FAERS Safety Report 4299199-X (Version None)
Quarter: 2004Q1

REPORT INFORMATION
  Report Type: 
  Country: None (occurrence: None)
  Receive Date: 20040217
  Receipt Date: 20040204
  Transmission Date: 20041129
  Serious: Yes (Death, Hospitalization)
  Sender: FDA-Public Use
  Company Number: 04P-163-0249611-00

PATIENT
  Age: 80 Year
  Sex: Male

DRUGS (11)
  1. HUMIRA [Suspect]
     Indication: RHEUMATOID ARTHRITIS
     Dosage: 40 MG, 1 IN 2 WK, SUBCUTANEOUS; SEE IMAGE
     Route: 058
     Dates: start: 20040609, end: 20030721
  2. HUMIRA [Suspect]
     Indication: RHEUMATOID ARTHRITIS
     Dosage: 40 MG, 1 IN 2 WK, SUBCUTANEOUS; SEE IMAGE
     Route: 058
     Dates: start: 20030915, end: 20031015
  3. HUMIRA [Suspect]
     Indication: RHEUMATOID ARTHRITIS
     Dosage: 40 MG, 1 IN 2 WK, SUBCUTANEOUS; SEE IMAGE
     Route: 058
     Dates: start: 20031016, end: 20031215
  4. HUMIRA [Suspect]
     Indication: RHEUMATOID ARTHRITIS
     Dosage: 40 MG, 1 IN 2 WK, SUBCUTANEOUS; SEE IMAGE
     Route: 058
     Dates: start: 20031216
  5. METHOTREXATE [Concomitant]
  6. SULFASALAZINE [Concomitant]
  7. FOLIC ACID [Concomitant]
  8. NABUMETONE [Concomitant]
  9. BUCINDOLOL HYDROCHLORIDE [Concomitant]
  10. VICODIN [Concomitant]
  11. ULTRACET [Concomitant]

REACTIONS (4)
  - CARDIAC ARREST [None]
  - HAEMATURIA [None]
  - PAIN [None]
  - PROSTATIC DISORDER [None]
